FAERS Safety Report 23048056 (Version 6)
Quarter: 2024Q1

REPORT INFORMATION
  Report Type: Spontaneous
  Country: CA (occurrence: CA)
  Receive Date: 20231010
  Receipt Date: 20240318
  Transmission Date: 20240410
  Serious: Yes (Other)
  Sender: FDA-Public Use
  Company Number: CA-CELLTRION INC.-2022CA001469

PATIENT

DRUGS (18)
  1. INFLECTRA [Suspect]
     Active Substance: INFLIXIMAB-DYYB
     Indication: Crohn^s disease
     Dosage: 370 MG 0, 2, 6 WEEK DOSE, THEN EVERY 8 WEEKS
     Route: 042
     Dates: start: 20211123
  2. INFLECTRA [Suspect]
     Active Substance: INFLIXIMAB-DYYB
     Dosage: 370 MG, INDUCTION WEEK 0 AND 2
     Route: 042
     Dates: start: 20211123, end: 20211209
  3. INFLECTRA [Suspect]
     Active Substance: INFLIXIMAB-DYYB
     Dosage: 370 MG 0, 2, 6 WEEK DOSE, THEN EVERY 8 WEEKS
     Route: 042
     Dates: start: 20211209, end: 20211209
  4. INFLECTRA [Suspect]
     Active Substance: INFLIXIMAB-DYYB
     Dosage: 370 MG 0, 2, 6 WEEK DOSE, THEN EVERY 8 WEEKS
     Route: 042
     Dates: start: 20220115
  5. INFLECTRA [Suspect]
     Active Substance: INFLIXIMAB-DYYB
     Dosage: 5 MG/KG, EVERY 8 WEEKS (WEEK 6 THEN Q 8 WEEKS - ROUNDED TO NEAREST HUNDRED)
     Route: 042
     Dates: start: 20220115
  6. INFLECTRA [Suspect]
     Active Substance: INFLIXIMAB-DYYB
     Dosage: 370 MG 0, 2, 6 WEEK DOSE, THEN EVERY 8 WEEKS
     Route: 042
     Dates: start: 20220315
  7. INFLECTRA [Suspect]
     Active Substance: INFLIXIMAB-DYYB
     Dosage: 370 MG 0, 2, 6 WEEK DOSE, THEN EVERY 8 WEEKS
     Route: 042
     Dates: start: 20220510
  8. INFLECTRA [Suspect]
     Active Substance: INFLIXIMAB-DYYB
     Dosage: 5 MG/KG EVERY 8 WEEKS (WEEK 6 THEN Q 8 WEEKS - ROUNDED TO NEAREST HUNDRED)
     Route: 042
     Dates: start: 20220705
  9. INFLECTRA [Suspect]
     Active Substance: INFLIXIMAB-DYYB
     Dosage: 5 MG/KG EVERY 8 WEEKS (WEEK 6 THEN Q 8 WEEKS - ROUNDED TO NEAREST HUNDRED)
     Route: 042
     Dates: start: 20220831
  10. INFLECTRA [Suspect]
     Active Substance: INFLIXIMAB-DYYB
     Dosage: 5 MG/KG EVERY 8 WEEKS (WEEK 6 THEN Q 8 WEEKS - ROUNDED TO NEAREST HUNDRED)
     Route: 042
     Dates: start: 20221025
  11. INFLECTRA [Suspect]
     Active Substance: INFLIXIMAB-DYYB
     Dosage: 5 MG/KG EVERY 8 WEEKS (WEEK 6 THEN Q 8 WEEKS - ROUNDED TO NEAREST HUNDRED)
     Route: 042
     Dates: start: 20230607
  12. INFLECTRA [Suspect]
     Active Substance: INFLIXIMAB-DYYB
     Dosage: 400 MG (5MG/KG ROUNDED UP TO THE NEAREST HUNDREDTH), 8 WEEKS
     Route: 042
     Dates: start: 20230802
  13. INFLECTRA [Suspect]
     Active Substance: INFLIXIMAB-DYYB
     Dosage: 5 MG/KG, EVERY 8 WEEK 6 THEN Q 8 WEEKS - ROUNDED TO NEAREST HUNDRED, (400 MG, EVERY 8 WEEKS)
     Route: 042
     Dates: start: 20231003
  14. INFLECTRA [Suspect]
     Active Substance: INFLIXIMAB-DYYB
     Dosage: 400 MG (7 WEEKS AND 2 DAYS)
     Route: 042
     Dates: start: 20231123
  15. INFLECTRA [Suspect]
     Active Substance: INFLIXIMAB-DYYB
     Dosage: 420 MG, 8 WEEKS AND 5 DAYS (5 MG/KG EVERY 8 WEEKS)
     Route: 042
     Dates: start: 20240123
  16. INFLECTRA [Suspect]
     Active Substance: INFLIXIMAB-DYYB
     Dosage: 5 MG/KG, EVERY 6 WEEKS (400MG, 6 WEEKS AND 2 DAYS)
     Route: 042
     Dates: start: 20240307
  17. METHOTREXATE [Concomitant]
     Active Substance: METHOTREXATE
     Dosage: 1 DF, DOSAGE NOT AVAILABLE.STATUS DISCONTINUED
     Route: 065
     Dates: start: 202103, end: 202111
  18. CORTISONE ACETATE [Concomitant]
     Active Substance: CORTISONE ACETATE
     Dosage: UNK, 2 SERIES OF WEEKS EACH
     Dates: start: 20211120, end: 20220105

REACTIONS (19)
  - COVID-19 [Recovered/Resolved]
  - Abdominal pain upper [Not Recovered/Not Resolved]
  - Fatigue [Not Recovered/Not Resolved]
  - Secretion discharge [Not Recovered/Not Resolved]
  - Condition aggravated [Recovered/Resolved]
  - Weight increased [Unknown]
  - Bowel movement irregularity [Unknown]
  - Discomfort [Unknown]
  - Pyrexia [Unknown]
  - Influenza [Unknown]
  - Conjunctivitis allergic [Unknown]
  - Arthralgia [Recovered/Resolved]
  - Therapeutic response shortened [Not Recovered/Not Resolved]
  - Abdominal discomfort [Recovering/Resolving]
  - Off label use [Unknown]
  - Off label use [Unknown]
  - Intentional product use issue [Unknown]
  - Inappropriate schedule of product administration [Unknown]
  - Off label use [Unknown]

NARRATIVE: CASE EVENT DATE: 20210101
